FAERS Safety Report 11884371 (Version 1)
Quarter: 2015Q4

REPORT INFORMATION
  Report Type: Spontaneous
  Country: US (occurrence: None)
  Receive Date: 20151231
  Receipt Date: 20151231
  Transmission Date: 20160305
  Serious: Yes (Other)
  Sender: FDA-Public Use
  Company Number: None

PATIENT
  Age: 80 Year
  Sex: Male

DRUGS (1)
  1. LIDOCAINE PATCH 5% MYLAN [Suspect]
     Active Substance: LIDOCAINE
     Indication: ANALGESIC THERAPY
     Dosage: APPLY 1 PATCH FOR 12 HOURS?
     Route: 062

REACTIONS (3)
  - Product substitution issue [None]
  - Drug effect decreased [None]
  - Product adhesion issue [None]

NARRATIVE: CASE EVENT DATE: 20151230
